FAERS Safety Report 8300813-X (Version None)
Quarter: 2012Q2

REPORT INFORMATION
  Report Type: 
  Country: None (occurrence: None)
  Receive Date: 20120417
  Receipt Date: 20120413
  Transmission Date: 20120825
  Serious: Yes (Other)
  Sender: FDA-Public Use
  Company Number: ADR-2011-11053

PATIENT
  Sex: Male

DRUGS (1)
  1. LIORESAL [Suspect]
     Indication: MUSCLE SPASTICITY
     Dosage: 48 MCG, DAILY, INTRATHECAL
     Route: 037

REACTIONS (3)
  - SKIN NECROSIS [None]
  - STAPHYLOCOCCAL INFECTION [None]
  - MEDICAL DEVICE COMPLICATION [None]
